FAERS Safety Report 18397995 (Version 1)
Quarter: 2020Q4

REPORT INFORMATION
  Report Type: Spontaneous
  Country: GB (occurrence: GB)
  Receive Date: 20201019
  Receipt Date: 20201019
  Transmission Date: 20210114
  Serious: Yes (Death)
  Sender: FDA-Public Use
  Company Number: GB-FERRINGPH-2020FE07143

PATIENT
  Age: 80 Year
  Sex: Female
  Weight: 76.5 kg

DRUGS (10)
  1. ALENDRONIC ACID [Concomitant]
     Active Substance: ALENDRONIC ACID
  2. AZITHROMYCIN ANHYDROUS. [Concomitant]
     Active Substance: AZITHROMYCIN ANHYDROUS
  3. ACICLOVIR [Concomitant]
     Active Substance: ACYCLOVIR
  4. OMEPRAZOLE. [Concomitant]
     Active Substance: OMEPRAZOLE
  5. HYDROXYCHLOROQUINE [Concomitant]
     Active Substance: HYDROXYCHLOROQUINE
  6. EZETIMIBE. [Concomitant]
     Active Substance: EZETIMIBE
  7. FULTIUM D3 [Concomitant]
     Active Substance: CHOLECALCIFEROL
  8. PICOLAX (ANHYDROUS CITRIC ACID\MAGNESIUM OXIDE\SODIUM PICOSULFATE) [Suspect]
     Active Substance: ANHYDROUS CITRIC ACID\MAGNESIUM OXIDE\SODIUM PICOSULFATE
     Indication: BOWEL PREPARATION
     Dosage: 2 DF
     Route: 048
     Dates: start: 20190124, end: 20190124
  9. SALBUTAMOL [Concomitant]
     Active Substance: ALBUTEROL
  10. PREDNISOLONE. [Concomitant]
     Active Substance: PREDNISOLONE

REACTIONS (5)
  - Hyponatraemia [Fatal]
  - Pneumonia [Fatal]
  - Influenza [Fatal]
  - Pneumonia aspiration [Fatal]
  - Hyponatraemic seizure [Fatal]

NARRATIVE: CASE EVENT DATE: 20190125
